FAERS Safety Report 15680431 (Version 2)
Quarter: 2018Q4

REPORT INFORMATION
  Report Type: Report from Study
  Country: US (occurrence: US)
  Receive Date: 20181203
  Receipt Date: 20181206
  Transmission Date: 20190205
  Serious: Yes (Other)
  Sender: FDA-Public Use
  Company Number: US-TEVA-2018-US-982219

PATIENT
  Age: 72 Year
  Sex: Male

DRUGS (1)
  1. AUSTEDO [Suspect]
     Active Substance: DEUTETRABENAZINE
     Indication: TARDIVE DYSKINESIA
     Dosage: 12 MILLIGRAM DAILY;
     Route: 065
     Dates: start: 20181119

REACTIONS (6)
  - Restlessness [Unknown]
  - Insomnia [Unknown]
  - Abnormal behaviour [Unknown]
  - Inappropriate schedule of product administration [Unknown]
  - Soliloquy [Unknown]
  - Schizophrenia [Unknown]

NARRATIVE: CASE EVENT DATE: 201811
